FAERS Safety Report 13571885 (Version 1)
Quarter: 2017Q2

REPORT INFORMATION
  Report Type: Spontaneous
  Country: IE (occurrence: IE)
  Receive Date: 20170523
  Receipt Date: 20170523
  Transmission Date: 20170830
  Serious: Yes (Other)
  Sender: FDA-Public Use
  Company Number: IE-CPL-000016

PATIENT
  Age: 4 Year
  Sex: Male

DRUGS (4)
  1. BETAMETHASONE. [Concomitant]
     Active Substance: BETAMETHASONE
     Route: 061
  2. FLUCLOXACILLIN [Concomitant]
     Active Substance: FLUCLOXACILLIN
     Indication: DERMATITIS ATOPIC
     Route: 048
  3. ACICLOVIR [Suspect]
     Active Substance: ACYCLOVIR
     Indication: ECZEMA HERPETICUM
     Route: 048
  4. CLOBETASONE [Concomitant]
     Active Substance: CLOBETASONE
     Indication: DERMATITIS ATOPIC
     Route: 061

REACTIONS (1)
  - Lichen planus [Recovered/Resolved]
